FAERS Safety Report 7348080-8 (Version None)
Quarter: 2011Q1

REPORT INFORMATION
  Report Type: 
  Country: None (occurrence: None)
  Receive Date: 20110302
  Receipt Date: 20090513
  Transmission Date: 20110831
  Serious: Yes (Hospitalization)
  Sender: FDA-Public Use
  Company Number: UK-2009-00158

PATIENT
  Sex: Male
  Weight: 77 kg

DRUGS (7)
  1. FLUOXETINE(UNKNOWN) [Concomitant]
  2. ZOPICLONE (UNKNOWN) [Concomitant]
  3. OMEPROZOLE(UNKNOWN) [Concomitant]
  4. SIMVASTATIN [Suspect]
     Indication: PRODUCT USED FOR UNKNOWN INDICATION
  5. LISINOPRIL [Concomitant]
  6. ASPIRIN [Concomitant]
  7. THIAMINE/ VITAMIN B SUBSTANCES (THIAMINE)(UNKNOWN) [Concomitant]

REACTIONS (2)
  - DYSPHAGIA [None]
  - SWOLLEN TONGUE [None]
